FAERS Safety Report 21066767 (Version 1)
Quarter: 2022Q3

REPORT INFORMATION
  Report Type: Spontaneous
  Country: FR (occurrence: FR)
  Receive Date: 20220712
  Receipt Date: 20220712
  Transmission Date: 20221026
  Serious: Yes (Other)
  Sender: FDA-Public Use
  Company Number: FR-AFSSAPS-AVTO20220042

PATIENT
  Age: 76 Year
  Sex: Female

DRUGS (1)
  1. PREGABALIN [Suspect]
     Active Substance: PREGABALIN
     Indication: Facial myokymia
     Dosage: 225 MILLIGRAM, DAILY
     Route: 048
     Dates: start: 2016, end: 20220207

REACTIONS (3)
  - Withdrawal syndrome [Recovered/Resolved]
  - Impaired gastric emptying [Recovered/Resolved]
  - Subileus [Recovered/Resolved]

NARRATIVE: CASE EVENT DATE: 20220215
